APPROVED DRUG PRODUCT: DARVON
Active Ingredient: PROPOXYPHENE HYDROCHLORIDE
Strength: 65MG
Dosage Form/Route: CAPSULE;ORAL
Application: N010997 | Product #003
Applicant: XANODYNE PHARMACEUTICS INC
Approved: Approved Prior to Jan 1, 1982 | RLD: No | RS: No | Type: DISCN